FAERS Safety Report 5389583-5 (Version None)
Quarter: 2007Q3

REPORT INFORMATION
  Report Type: 
  Country: None (occurrence: None)
  Receive Date: 20070717
  Receipt Date: 20070706
  Transmission Date: 20080115
  Serious: Yes (Other)
  Sender: FDA-Public Use
  Company Number: US-PFIZER INC-2007055517

PATIENT
  Sex: Female
  Weight: 63.5 kg

DRUGS (2)
  1. SUTENT [Suspect]
     Indication: RENAL CELL CARCINOMA STAGE UNSPECIFIED
  2. HYDROCODONE BITARTRATE [Concomitant]

REACTIONS (4)
  - ARRHYTHMIA [None]
  - DIARRHOEA [None]
  - HYPERTENSION [None]
  - NAUSEA [None]
